FAERS Safety Report 13756595 (Version 2)
Quarter: 2017Q3

REPORT INFORMATION
  Report Type: Spontaneous
  Country: NL (occurrence: NL)
  Receive Date: 20170714
  Receipt Date: 20170727
  Transmission Date: 20171127
  Serious: Yes (Other)
  Sender: FDA-Public Use
  Company Number: NL-PFIZER INC-2017301862

PATIENT
  Age: 53 Year
  Sex: Female
  Weight: 65 kg

DRUGS (4)
  1. COLECALCIFEROL [Concomitant]
     Active Substance: CHOLECALCIFEROL
     Dosage: 1 DF, UNK
     Route: 048
     Dates: start: 20170410
  2. MACROGOL 3350 W/POTASSIUM CHLORIDE//01749801/ [Concomitant]
     Dosage: 1 DF, 1X/DAY
     Route: 048
     Dates: start: 20170531
  3. TRINORDIOL [Suspect]
     Active Substance: ETHINYL ESTRADIOL\LEVONORGESTREL
     Indication: MENOPAUSAL SYMPTOMS
     Dosage: 1 DF, CYCLIC
     Route: 048
     Dates: start: 20170208
  4. DESLORATADINE. [Concomitant]
     Active Substance: DESLORATADINE
     Dosage: 5 MG, 1X/DAY (1DD1)
     Route: 048
     Dates: start: 20170410

REACTIONS (2)
  - Amaurosis fugax [Recovered/Resolved]
  - Product use in unapproved indication [Unknown]

NARRATIVE: CASE EVENT DATE: 20170625
